FAERS Safety Report 15846470 (Version 1)
Quarter: 2019Q1

REPORT INFORMATION
  Report Type: Spontaneous
  Country: US (occurrence: US)
  Receive Date: 20190120
  Receipt Date: 20190120
  Transmission Date: 20190417
  Serious: No
  Sender: FDA-Public Use
  Company Number: US-AMGEN-USASP2019008010

PATIENT
  Age: 51 Year
  Sex: Male

DRUGS (7)
  1. ALBENDAZOLE. [Concomitant]
     Active Substance: ALBENDAZOLE
     Dosage: UNK
  2. PRAZIQUANTEL. [Concomitant]
     Active Substance: PRAZIQUANTEL
     Dosage: UNK
     Dates: end: 201803
  3. ALBENDAZOLE. [Concomitant]
     Active Substance: ALBENDAZOLE
     Dosage: UNK
     Dates: end: 201803
  4. PRAZIQUANTEL. [Concomitant]
     Active Substance: PRAZIQUANTEL
     Dosage: UNK
  5. DEXAMETHASONE. [Concomitant]
     Active Substance: DEXAMETHASONE
     Dosage: UNK
  6. ETANERCEPT [Suspect]
     Active Substance: ETANERCEPT
     Indication: INFLAMMATION
     Dosage: 50 MG, UNK
     Route: 065
  7. ETANERCEPT [Suspect]
     Active Substance: ETANERCEPT
     Dosage: 50 MG, UNK
     Route: 058
     Dates: end: 201711

REACTIONS (1)
  - Off label use [Unknown]
